FAERS Safety Report 9853618 (Version 1)
Quarter: 2014Q1

REPORT INFORMATION
  Report Type: Spontaneous
  Country: TR (occurrence: TR)
  Receive Date: 20140129
  Receipt Date: 20140129
  Transmission Date: 20141002
  Serious: Yes (Hospitalization)
  Sender: FDA-Public Use
  Company Number: TR-ABBVIE-14P-161-1194334-00

PATIENT
  Age: 15 Year
  Sex: Male

DRUGS (3)
  1. VALPROIC ACID [Suspect]
     Indication: CONVULSION
     Route: 042
  2. LEVETIRACETAM [Interacting]
     Indication: CONVULSION
     Route: 065
  3. ANTIBIOTICS [Concomitant]
     Indication: PRODUCT USED FOR UNKNOWN INDICATION

REACTIONS (7)
  - Altered state of consciousness [Recovering/Resolving]
  - Hyperammonaemia [Recovering/Resolving]
  - Drug interaction [Unknown]
  - Confusional state [Recovering/Resolving]
  - Lethargy [Recovering/Resolving]
  - Convulsion [Unknown]
  - Mental status changes [Recovering/Resolving]
